FAERS Safety Report 13737097 (Version 1)
Quarter: 2017Q3

REPORT INFORMATION
  Report Type: Spontaneous
  Country: US (occurrence: US)
  Receive Date: 20170710
  Receipt Date: 20170710
  Transmission Date: 20171127
  Serious: Yes (Other)
  Sender: FDA-Public Use
  Company Number: US-JNJFOC-20170704578

PATIENT
  Age: 78 Year
  Sex: Female
  Weight: 64 kg

DRUGS (23)
  1. IMBRUVICA [Suspect]
     Active Substance: IBRUTINIB
     Indication: PRODUCT USED FOR UNKNOWN INDICATION
     Route: 048
     Dates: start: 20170622
  2. VALTREX [Concomitant]
     Active Substance: VALACYCLOVIR HYDROCHLORIDE
  3. GABAPENTIN. [Concomitant]
     Active Substance: GABAPENTIN
  4. GLYCOPYRRONIUM [Concomitant]
     Active Substance: GLYCOPYRRONIUM
  5. LACTAID [Concomitant]
     Active Substance: LACTASE
  6. PREVALITE [Concomitant]
     Active Substance: CHOLESTYRAMINE
  7. VITAMIN D3 [Concomitant]
     Active Substance: CHOLECALCIFEROL
  8. MELOXICAM. [Concomitant]
     Active Substance: MELOXICAM
  9. MYCOSTATIN [Concomitant]
     Active Substance: NYSTATIN
  10. KETOCONAZOLE. [Concomitant]
     Active Substance: KETOCONAZOLE
  11. GAS-X [Concomitant]
     Active Substance: DIMETHICONE
  12. ALPRAZOLAM. [Concomitant]
     Active Substance: ALPRAZOLAM
  13. DOXEPIN [Concomitant]
     Active Substance: DOXEPIN
  14. FLUOCINOLONE [Concomitant]
     Active Substance: FLUOCINOLONE
  15. TRAMADOL. [Concomitant]
     Active Substance: TRAMADOL
  16. CALCIUM [Concomitant]
     Active Substance: CALCIUM
  17. FUROSEMIDE. [Concomitant]
     Active Substance: FUROSEMIDE
  18. VENLAFAXINE [Concomitant]
     Active Substance: VENLAFAXINE HYDROCHLORIDE
  19. AZITHROMYCIN ANHYDROUS. [Concomitant]
     Active Substance: AZITHROMYCIN ANHYDROUS
  20. EVISTA [Concomitant]
     Active Substance: RALOXIFENE HYDROCHLORIDE
  21. IMBRUVICA [Suspect]
     Active Substance: IBRUTINIB
     Indication: PRODUCT USED FOR UNKNOWN INDICATION
     Route: 048
     Dates: start: 20141008, end: 20170614
  22. OXYBUTYNIN [Concomitant]
     Active Substance: OXYBUTYNIN
  23. DIOVAN [Concomitant]
     Active Substance: VALSARTAN

REACTIONS (1)
  - Surgery [Unknown]

NARRATIVE: CASE EVENT DATE: 201706
